FAERS Safety Report 14833832 (Version 1)
Quarter: 2018Q2

REPORT INFORMATION
  Report Type: Spontaneous
  Country: US (occurrence: US)
  Receive Date: 20180501
  Receipt Date: 20180501
  Transmission Date: 20180711
  Serious: No
  Sender: FDA-Public Use
  Company Number: US-ROCHE-2012084

PATIENT
  Age: 4 Month
  Sex: Female

DRUGS (3)
  1. BEVACIZUMAB. [Suspect]
     Active Substance: BEVACIZUMAB
     Indication: CHOROID PLEXUS CARCINOMA
     Route: 065
  2. TEMODAR [Suspect]
     Active Substance: TEMOZOLOMIDE
     Indication: CHOROID PLEXUS CARCINOMA
     Route: 065
  3. IRINOTECAN [Suspect]
     Active Substance: IRINOTECAN
     Indication: CHOROID PLEXUS CARCINOMA
     Route: 065

REACTIONS (1)
  - Blood count abnormal [Unknown]
